FAERS Safety Report 9200438 (Version 4)
Quarter: 2014Q1

REPORT INFORMATION
  Report Type: Spontaneous
  Country: IT (occurrence: IT)
  Receive Date: 20130329
  Receipt Date: 20140324
  Transmission Date: 20141002
  Serious: Yes (Life-Threatening, Other)
  Sender: FDA-Public Use
  Company Number: IT-OTSUKA-EU-2013-10078

PATIENT
  Age: 30 Year
  Sex: Male
  Weight: 85 kg

DRUGS (5)
  1. SAMSCA [Suspect]
     Indication: INAPPROPRIATE ANTIDIURETIC HORMONE SECRETION
     Dosage: 15 MG MILLIGRAM(S), DAILY DOSE
     Route: 048
     Dates: start: 20130222, end: 20130223
  2. PARACETAMOL [Concomitant]
     Indication: ARTHROPOD STING
     Dosage: 1 G GRAM(S), PRN
     Route: 048
  3. URSODESOXYCHOLIC ACID [Concomitant]
     Indication: BILIARY TRACT DISORDER
     Dosage: 300 MG MILLIGRAM(S), TID
     Route: 048
  4. RANITIDINE [Concomitant]
     Indication: PROPHYLAXIS
     Dosage: 300 MG MILLIGRAM(S), DAILY DOSE
     Route: 065
  5. SANDOSTATINE [Concomitant]
     Indication: HORMONE THERAPY
     Dosage: 30 MG MILLIGRAM(S), UNKNOWN
     Route: 030

REACTIONS (4)
  - Disorientation [Recovered/Resolved]
  - Hallucination, visual [Recovered/Resolved]
  - Psychomotor hyperactivity [Recovered/Resolved]
  - Rapid correction of hyponatraemia [Unknown]
